FAERS Safety Report 13425999 (Version 1)
Quarter: 2017Q2

REPORT INFORMATION
  Report Type: Spontaneous
  Country: US (occurrence: US)
  Receive Date: 20170411
  Receipt Date: 20170411
  Transmission Date: 20170830
  Serious: No
  Sender: FDA-Public Use
  Company Number: US-JNJFOC-20170224570

PATIENT
  Sex: Female
  Weight: 62.14 kg

DRUGS (7)
  1. DURAGESIC [Suspect]
     Active Substance: FENTANYL
     Indication: PAIN
     Dosage: USED 50 MCG/HR AND 12 MCG/HR PATCH TOGETHER
     Route: 062
  2. DURAGESIC [Suspect]
     Active Substance: FENTANYL
     Indication: PAIN
     Route: 062
  3. MORPHINE [Concomitant]
     Active Substance: MORPHINE
     Indication: ASTHMA
     Route: 065
  4. ALBUTEROL. [Concomitant]
     Active Substance: ALBUTEROL
     Indication: ASTHMA
     Route: 065
  5. OXYCODONE [Concomitant]
     Active Substance: OXYCODONE
     Indication: BREAKTHROUGH PAIN
     Route: 065
  6. DURAGESIC [Suspect]
     Active Substance: FENTANYL
     Indication: PAIN
     Dosage: USED 50 MCG/HR AND 12 MCG/HR PATCH TOGETHER
     Route: 062
  7. DURAGESIC [Suspect]
     Active Substance: FENTANYL
     Indication: PAIN
     Route: 062

REACTIONS (9)
  - Withdrawal syndrome [Unknown]
  - Product availability issue [Unknown]
  - Pyrexia [Unknown]
  - Malaise [Unknown]
  - Drug effect incomplete [Unknown]
  - Product adhesion issue [Unknown]
  - Influenza [Unknown]
  - Vomiting [Unknown]
  - Wrong technique in product usage process [Unknown]
